FAERS Safety Report 9291584 (Version 2)
Quarter: 2013Q3

REPORT INFORMATION
  Report Type: Report from Study
  Country: JP (occurrence: JP)
  Receive Date: 20130515
  Receipt Date: 20130730
  Transmission Date: 20140515
  Serious: Yes (Hospitalization)
  Sender: FDA-Public Use
  Company Number: JP-GLAXOSMITHKLINE-B0890795A

PATIENT
  Age: 61 Year
  Sex: Female
  Weight: 52 kg

DRUGS (11)
  1. TYKERB [Suspect]
     Indication: HER-2 POSITIVE BREAST CANCER
     Dosage: 1000MG PER DAY
     Route: 048
     Dates: start: 20130121
  2. TYKERB [Suspect]
     Indication: HER-2 POSITIVE BREAST CANCER
     Route: 048
     Dates: end: 20130426
  3. HERCEPTIN [Concomitant]
     Indication: HER-2 POSITIVE BREAST CANCER
     Route: 042
     Dates: start: 20130121
  4. HERCEPTIN [Concomitant]
     Indication: HER-2 POSITIVE BREAST CANCER
     Route: 042
  5. PACLITAXEL [Concomitant]
     Indication: HER-2 POSITIVE BREAST CANCER
     Route: 042
     Dates: start: 20130305
  6. ALLEGRA [Concomitant]
     Indication: DERMATITIS ACNEIFORM
     Dosage: 60MG TWICE PER DAY
     Route: 048
     Dates: start: 20130204, end: 20130430
  7. MINOMYCIN [Concomitant]
     Indication: DERMATITIS ACNEIFORM
     Dosage: 100MG TWICE PER DAY
     Route: 048
     Dates: start: 20130204, end: 20130430
  8. LOCOID [Concomitant]
     Indication: DERMATITIS ACNEIFORM
     Route: 061
     Dates: start: 20130204, end: 20130430
  9. WHITE PETROLATUM [Concomitant]
     Indication: DERMATITIS ACNEIFORM
     Route: 061
     Dates: start: 20130204, end: 20130430
  10. SAHNE [Concomitant]
     Indication: DERMATITIS ACNEIFORM
     Route: 061
     Dates: start: 20130204, end: 20130430
  11. BESOFTEN [Concomitant]
     Indication: DERMATITIS ACNEIFORM
     Route: 061
     Dates: start: 20130305, end: 20130430

REACTIONS (2)
  - Loss of consciousness [Recovered/Resolved]
  - Dermatitis acneiform [Recovered/Resolved]
